FAERS Safety Report 22101939 (Version 1)
Quarter: 2023Q1

REPORT INFORMATION
  Report Type: Other
  Country: FR (occurrence: FR)
  Receive Date: 20230316
  Receipt Date: 20230316
  Transmission Date: 20230418
  Serious: Yes (Hospitalization, Other)
  Sender: FDA-Public Use
  Company Number: None

PATIENT
  Age: 49 Year
  Sex: Female
  Weight: 42 kg

DRUGS (2)
  1. PROGRAF [Interacting]
     Active Substance: TACROLIMUS
     Indication: Renal transplant
     Route: 048
     Dates: start: 20221222
  2. VORICONAZOLE [Interacting]
     Active Substance: VORICONAZOLE
     Indication: Candida infection
     Route: 048
     Dates: start: 20230102, end: 20230107

REACTIONS (3)
  - Acute kidney injury [Recovering/Resolving]
  - Cholestatic liver injury [Recovering/Resolving]
  - Drug interaction [Unknown]

NARRATIVE: CASE EVENT DATE: 20230110
